FAERS Safety Report 9018330 (Version 1)
Quarter: 2013Q1

REPORT INFORMATION
  Report Type: Spontaneous
  Country: US (occurrence: US)
  Receive Date: 20130117
  Receipt Date: 20130117
  Transmission Date: 20140127
  Serious: No
  Sender: FDA-Public Use
  Company Number: US-TEVA-379946USA

PATIENT
  Sex: Female

DRUGS (3)
  1. TREANDA [Suspect]
  2. ALOXI [Concomitant]
     Dates: start: 20130102
  3. ATIVAN [Concomitant]
     Dates: start: 20130103

REACTIONS (4)
  - Pyrexia [Recovered/Resolved]
  - Infusion site reaction [Unknown]
  - Nausea [Unknown]
  - Vomiting [Unknown]
